FAERS Safety Report 9375928 (Version 1)
Quarter: 2013Q2

REPORT INFORMATION
  Report Type: Spontaneous
  Country: GB (occurrence: GB)
  Receive Date: 20130628
  Receipt Date: 20130628
  Transmission Date: 20140414
  Serious: Yes (Death, Hospitalization)
  Sender: FDA-Public Use
  Company Number: GB-BAXTER-2013BAX021615

PATIENT
  Age: 52 Year
  Sex: Male
  Weight: 62.7 kg

DRUGS (3)
  1. DIANEAL PD4 GLUCOSE 1.36% W/V / 13.6 MG/ML [Suspect]
     Indication: RENAL FAILURE CHRONIC
     Route: 033
     Dates: start: 201103, end: 20130521
  2. DIANEAL PD4 GLUCOSE 2.27% W/V / 22.7 MG/ML [Suspect]
     Indication: RENAL FAILURE CHRONIC
     Route: 033
     Dates: start: 201103, end: 20130521
  3. EXTRANEAL (ICODEXTRIN 7.5%) SOLUTION FOR PERITONEAL DIALYSIS [Suspect]
     Indication: RENAL FAILURE CHRONIC
     Route: 033
     Dates: start: 201103, end: 20130521

REACTIONS (2)
  - Cardiac disorder [Fatal]
  - Fungal peritonitis [Unknown]
